FAERS Safety Report 10226792 (Version 1)
Quarter: 2014Q2

REPORT INFORMATION
  Report Type: Spontaneous
  Country: GB (occurrence: GB)
  Receive Date: 20140610
  Receipt Date: 20140610
  Transmission Date: 20141212
  Serious: Yes (Other)
  Sender: FDA-Public Use
  Company Number: GB-009507513-1406GBR002668

PATIENT
  Sex: Male

DRUGS (1)
  1. INEGY [Suspect]
     Dosage: UNK
     Route: 048

REACTIONS (3)
  - Tracheostomy [Unknown]
  - Throat irritation [Unknown]
  - Product substitution issue [Unknown]
